FAERS Safety Report 6015131-2 (Version None)
Quarter: 2008Q4

REPORT INFORMATION
  Report Type: 
  Country: None (occurrence: None)
  Receive Date: 20081222
  Receipt Date: 20081121
  Transmission Date: 20090506
  Serious: No
  Sender: FDA-Public Use
  Company Number: US-BAYER-200839397NA

PATIENT
  Age: 26 Year
  Sex: Female
  Weight: 54 kg

DRUGS (2)
  1. ULTRAVIST (PHARMACY BULK) [Suspect]
     Indication: PAIN
     Dosage: TOTAL DAILY DOSE: 90 ML
     Route: 042
     Dates: start: 20081120, end: 20081120
  2. ULTRAVIST (PHARMACY BULK) [Suspect]
     Dates: start: 20081120, end: 20081120

REACTIONS (1)
  - URTICARIA [None]
